FAERS Safety Report 17768411 (Version 2)
Quarter: 2020Q2

REPORT INFORMATION
  Report Type: Spontaneous
  Country: IT (occurrence: IT)
  Receive Date: 20200511
  Receipt Date: 20200601
  Transmission Date: 20200714
  Serious: Yes (Life-Threatening)
  Sender: FDA-Public Use
  Company Number: IT-BAXTER-2020BAX009769

PATIENT
  Age: 62 Year
  Sex: Male

DRUGS (4)
  1. CISPLATIN. [Suspect]
     Active Substance: CISPLATIN
     Indication: THYMOMA MALIGNANT
     Dosage: CYCLICAL, 5 CYCLES, STANDARD CAPP REGIMEN
     Route: 065
     Dates: start: 201706, end: 2017
  2. DOXIL [Suspect]
     Active Substance: DOXORUBICIN HYDROCHLORIDE
     Indication: THYMOMA MALIGNANT
     Dosage: CYCLICAL
     Route: 065
     Dates: start: 201706, end: 2017
  3. PREDNISONE. [Suspect]
     Active Substance: PREDNISONE
     Indication: THYMOMA MALIGNANT
     Dosage: CYCLICAL, 5 CYCLES, STANDARD CAPP REGIMEN
     Route: 065
     Dates: start: 201706, end: 2017
  4. ENDOXAN BAXTER [Suspect]
     Active Substance: CYCLOPHOSPHAMIDE
     Indication: THYMOMA MALIGNANT
     Dosage: CYCLICAL, 5 CYCLES, STANDARD CAPP REGIMEN
     Route: 065
     Dates: start: 201706, end: 2017

REACTIONS (4)
  - Aplasia pure red cell [Unknown]
  - Amegakaryocytic thrombocytopenia [Unknown]
  - Therapeutic product effect incomplete [Unknown]
  - Normocytic anaemia [Not Recovered/Not Resolved]

NARRATIVE: CASE EVENT DATE: 201708
